FAERS Safety Report 10598863 (Version 1)
Quarter: 2014Q4

REPORT INFORMATION
  Report Type: Spontaneous
  Country: US (occurrence: US)
  Receive Date: 20141121
  Receipt Date: 20141121
  Transmission Date: 20150529
  Serious: Yes (Hospitalization, Disabling)
  Sender: FDA-Public Use
  Company Number: US-BRISTOL-MYERS SQUIBB COMPANY-21607601

PATIENT
  Sex: Male

DRUGS (1)
  1. ABILIFY [Suspect]
     Active Substance: ARIPIPRAZOLE
     Route: 048

REACTIONS (9)
  - Nephrolithiasis [Unknown]
  - Abdominal pain upper [Unknown]
  - Malaise [Unknown]
  - Nightmare [Unknown]
  - Restlessness [Unknown]
  - Dyspnoea [Unknown]
  - Vision blurred [Unknown]
  - Thirst [Unknown]
  - Constipation [Unknown]

NARRATIVE: CASE EVENT DATE: 201411
